FAERS Safety Report 25152735 (Version 1)
Quarter: 2025Q2

REPORT INFORMATION
  Report Type: Spontaneous
  Country: US (occurrence: US)
  Receive Date: 20250403
  Receipt Date: 20250403
  Transmission Date: 20250717
  Serious: Yes (Hospitalization, Other)
  Sender: NOVITIUM PHARMA
  Company Number: US-NOVITIUMPHARMA-2025USNVP00786

PATIENT
  Age: 76 Year
  Sex: Male

DRUGS (1)
  1. DAPSONE [Suspect]
     Active Substance: DAPSONE
     Indication: Prophylaxis

REACTIONS (4)
  - Cardiogenic shock [Unknown]
  - Pulmonary congestion [Recovering/Resolving]
  - Lactic acidosis [Recovered/Resolved]
  - Methaemoglobinaemia [Recovering/Resolving]
